FAERS Safety Report 7835767-3 (Version None)
Quarter: 2011Q4

REPORT INFORMATION
  Report Type: 
  Country: None (occurrence: None)
  Receive Date: 20111024
  Receipt Date: 20111019
  Transmission Date: 20120403
  Serious: Yes (Death, Hospitalization)
  Sender: FDA-Public Use
  Company Number: GB-PFIZER INC-2011253012

PATIENT
  Age: 47 Year
  Sex: Male

DRUGS (6)
  1. BENZODIAZEPINE DERIVATIVES [Suspect]
     Dosage: UNK
  2. PROTON PUMP INHIBITORS [Suspect]
     Dosage: UNK
  3. MORPHINE SULFATE [Suspect]
     Dosage: UNK
  4. PROPOFOL [Suspect]
     Dosage: UNK
     Route: 042
  5. VASOPRESSIN (BIOMARKER) [Suspect]
     Dosage: UNK
     Route: 042
  6. HYDROCORTISONE [Suspect]
     Dosage: UNK

REACTIONS (3)
  - MULTI-ORGAN FAILURE [None]
  - RHABDOMYOLYSIS [None]
  - RENAL FAILURE ACUTE [None]
